FAERS Safety Report 24035618 (Version 1)
Quarter: 2024Q3

REPORT INFORMATION
  Report Type: Spontaneous
  Country: US (occurrence: US)
  Receive Date: 20240701
  Receipt Date: 20240701
  Transmission Date: 20241016
  Serious: Yes (Hospitalization)
  Sender: MYLAN
  Company Number: US-MYLANLABS-2024M1058606

PATIENT
  Age: 50 Year
  Sex: Male
  Weight: 75 kg

DRUGS (3)
  1. TACROLIMUS [Suspect]
     Active Substance: TACROLIMUS
     Indication: Immunosuppressant drug therapy
     Dosage: UNK
     Route: 065
  2. GLECAPREVIR [Concomitant]
     Active Substance: GLECAPREVIR
     Indication: Antiretroviral therapy
     Dosage: UNK; 90 DAYS COURSE
     Route: 065
  3. PIBRENTASVIR [Concomitant]
     Active Substance: PIBRENTASVIR
     Indication: Antiretroviral therapy
     Dosage: UNK; 90 DAYS COURSE
     Route: 065

REACTIONS (4)
  - Toxicity to various agents [Unknown]
  - Mesangioproliferative glomerulonephritis [Unknown]
  - Renal tubular necrosis [Unknown]
  - Thrombotic microangiopathy [Unknown]
